FAERS Safety Report 4305176-2 (Version None)
Quarter: 2004Q1

REPORT INFORMATION
  Report Type: 
  Country: None (occurrence: None)
  Receive Date: 20040225
  Receipt Date: 20040225
  Transmission Date: 20041129
  Serious: Yes (Hospitalization)
  Sender: FDA-Public Use
  Company Number: None

PATIENT
  Sex: Female

DRUGS (9)
  1. AMIODARONE HCL [Suspect]
     Indication: ATRIAL FLUTTER
     Dosage: 1 MG/MIN IV CONT INF
     Route: 042
     Dates: start: 20031111, end: 20031112
  2. LINEZOLID [Concomitant]
  3. FLUCONAZOLE [Concomitant]
  4. ERYTHROMYCIN [Concomitant]
  5. HYDROMORPHONE [Concomitant]
  6. LORAZEPAM [Concomitant]
  7. CHLORALHYDRATE [Concomitant]
  8. METOPROLOL [Concomitant]
  9. SUCRALFATE [Concomitant]

REACTIONS (3)
  - COMA [None]
  - HEART RATE DECREASED [None]
  - HYPOTENSION [None]
